FAERS Safety Report 16437138 (Version 1)
Quarter: 2019Q2

REPORT INFORMATION
  Report Type: Spontaneous
  Country: JP (occurrence: JP)
  Receive Date: 20190615
  Receipt Date: 20190615
  Transmission Date: 20190711
  Serious: Yes (Death)
  Sender: FDA-Public Use
  Company Number: PHJP2019JP006795

PATIENT

DRUGS (1)
  1. REVOLADE TAB [Suspect]
     Active Substance: ELTROMBOPAG
     Indication: APLASTIC ANAEMIA
     Dosage: 50 MG, UNK
     Route: 048

REACTIONS (2)
  - Hepatic cancer [Fatal]
  - Concomitant disease progression [Fatal]
